FAERS Safety Report 10967870 (Version 3)
Quarter: 2015Q2

REPORT INFORMATION
  Report Type: Spontaneous
  Country: US (occurrence: US)
  Receive Date: 20150330
  Receipt Date: 20150630
  Transmission Date: 20150821
  Serious: Yes (Hospitalization, Other)
  Sender: FDA-Public Use
  Company Number: US-GLAXOSMITHKLINE-US2015040470

PATIENT
  Age: 86 Year
  Sex: Female

DRUGS (6)
  1. SYNTHROID [Concomitant]
     Active Substance: LEVOTHYROXINE SODIUM
  2. FLOVENT HFA [Suspect]
     Active Substance: FLUTICASONE PROPIONATE
     Indication: HYPERSENSITIVITY
     Dosage: 1 PUFF(S), BID
     Route: 055
  3. GLIMEPIRIDE. [Concomitant]
     Active Substance: GLIMEPIRIDE
  4. FLOVENT HFA [Suspect]
     Active Substance: FLUTICASONE PROPIONATE
     Indication: WHEEZING
     Dosage: UNK
  5. VALSARTAN. [Concomitant]
     Active Substance: VALSARTAN
  6. XOPENEX [Concomitant]
     Active Substance: LEVALBUTEROL HYDROCHLORIDE

REACTIONS (10)
  - Hip fracture [Recovered/Resolved]
  - Hip surgery [Recovered/Resolved]
  - Medication error [Unknown]
  - Loss of consciousness [Unknown]
  - Dizziness [Unknown]
  - Headache [Unknown]
  - Product use issue [Unknown]
  - Pharyngeal inflammation [Unknown]
  - Stomatitis [Unknown]
  - Product quality issue [Unknown]

NARRATIVE: CASE EVENT DATE: 201403
